FAERS Safety Report 20410189 (Version 1)
Quarter: 2022Q1

REPORT INFORMATION
  Report Type: Spontaneous
  Country: CN (occurrence: CN)
  Receive Date: 20220201
  Receipt Date: 20220201
  Transmission Date: 20220423
  Serious: Yes (Death, Hospitalization, Other)
  Sender: FDA-Public Use
  Company Number: CN-SA-SAC20220130000182

PATIENT
  Age: 14 Year
  Sex: Male
  Weight: 37 kg

DRUGS (2)
  1. CEREZYME [Suspect]
     Active Substance: IMIGLUCERASE
     Indication: Gaucher^s disease
     Dosage: DOSE OF 30U/KG-45U/KG
     Route: 042
     Dates: start: 2007
  2. CEREZYME [Suspect]
     Active Substance: IMIGLUCERASE
     Dosage: 30U/KG-45U/KG
     Route: 042

REACTIONS (3)
  - Epilepsy [Fatal]
  - Bone disorder [Recovered/Resolved]
  - Fracture [Recovered/Resolved]

NARRATIVE: CASE EVENT DATE: 20210601
